FAERS Safety Report 9564721 (Version 2)
Quarter: 2013Q4

REPORT INFORMATION
  Report Type: Spontaneous
  Country: US (occurrence: US)
  Receive Date: 20130930
  Receipt Date: 20131010
  Transmission Date: 20140711
  Serious: Yes (Disabling)
  Sender: FDA-Public Use
  Company Number: US-PFIZER INC-2013278249

PATIENT
  Age: 60 Year
  Sex: Male
  Weight: 89.8 kg

DRUGS (1)
  1. LYRICA [Suspect]
     Indication: PAIN
     Dosage: UNK
     Dates: end: 2012

REACTIONS (2)
  - Pain [Not Recovered/Not Resolved]
  - Drug ineffective [Unknown]
